FAERS Safety Report 25363686 (Version 1)
Quarter: 2025Q2

REPORT INFORMATION
  Report Type: Spontaneous
  Country: US (occurrence: None)
  Receive Date: 20250527
  Receipt Date: 20250527
  Transmission Date: 20250717
  Serious: Yes (Death)
  Sender: FDA-CTU
  Company Number: None

PATIENT
  Age: 64 Year
  Sex: Female

DRUGS (14)
  1. TACROLIMUS [Suspect]
     Active Substance: TACROLIMUS
     Indication: Lung transplant
     Dosage: 1 MG TWICE A DAY ORAL
     Route: 048
     Dates: start: 20230719, end: 20250507
  2. TACROLIMUS [Suspect]
     Active Substance: TACROLIMUS
     Indication: Lung transplant
     Dosage: 0.5 MG TWICE A DAY ORAL
     Route: 048
     Dates: start: 20230719, end: 20250507
  3. CARVEDILOL [Concomitant]
     Active Substance: CARVEDILOL
  4. MG plus protein 133mg [Concomitant]
  5. Sodium Chloride 1g [Concomitant]
  6. Nifedipine 60mg ER [Concomitant]
  7. CALCIUM\VITAMIN D [Concomitant]
     Active Substance: CALCIUM\VITAMIN D
  8. PREDNISONE [Concomitant]
     Active Substance: PREDNISONE
  9. Bactrim 400-80mg [Concomitant]
  10. Sirolimus 0.5mg + 1mg [Concomitant]
  11. Metamucil powder [Concomitant]
  12. VITAMINS [Concomitant]
     Active Substance: VITAMINS
  13. FUROSEMIDE [Concomitant]
     Active Substance: FUROSEMIDE
  14. Niacinamide 500mg [Concomitant]

REACTIONS (3)
  - Respiratory failure [None]
  - Hypotension [None]
  - Renal disorder [None]

NARRATIVE: CASE EVENT DATE: 20250507
